FAERS Safety Report 18522430 (Version 2)
Quarter: 2023Q1

REPORT INFORMATION
  Report Type: Spontaneous
  Country: NL (occurrence: NL)
  Receive Date: 20201119
  Receipt Date: 20230304
  Transmission Date: 20230418
  Serious: Yes (Hospitalization, Other)
  Sender: FDA-Public Use
  Company Number: NL-NAPPMUNDI-GBR-2020-0080769

PATIENT
  Sex: Male

DRUGS (59)
  1. FENTANYL [Suspect]
     Active Substance: FENTANYL
     Indication: Intervertebral disc degeneration
     Dosage: UNK
     Route: 065
  2. FENTANYL [Suspect]
     Active Substance: FENTANYL
     Indication: Arthralgia
  3. MORPHINE [Suspect]
     Active Substance: MORPHINE
     Indication: Intervertebral disc degeneration
     Dosage: UNK
     Route: 065
  4. MORPHINE [Suspect]
     Active Substance: MORPHINE
     Indication: Arthralgia
  5. MORPHINE [Suspect]
     Active Substance: MORPHINE
     Indication: Knee operation
  6. MORPHINE [Suspect]
     Active Substance: MORPHINE
     Indication: Spinal operation
  7. MORPHINE [Suspect]
     Active Substance: MORPHINE
     Indication: Neck surgery
  8. OXYCODONE HYDROCHLORIDE [Suspect]
     Active Substance: OXYCODONE HYDROCHLORIDE
     Indication: Intervertebral disc degeneration
     Dosage: UNK
     Route: 065
  9. OXYCODONE HYDROCHLORIDE [Suspect]
     Active Substance: OXYCODONE HYDROCHLORIDE
     Indication: Arthralgia
  10. OXYCODONE HYDROCHLORIDE [Suspect]
     Active Substance: OXYCODONE HYDROCHLORIDE
     Indication: Neck surgery
  11. OXYCODONE HYDROCHLORIDE [Suspect]
     Active Substance: OXYCODONE HYDROCHLORIDE
     Indication: Spinal operation
  12. OXYCODONE HYDROCHLORIDE [Suspect]
     Active Substance: OXYCODONE HYDROCHLORIDE
     Indication: Knee operation
  13. TRAMADOL [Suspect]
     Active Substance: TRAMADOL
     Indication: Intervertebral disc degeneration
     Dosage: UNK
     Route: 065
  14. TRAMADOL [Suspect]
     Active Substance: TRAMADOL
     Indication: Arthralgia
  15. TRAMADOL [Suspect]
     Active Substance: TRAMADOL
     Indication: Spinal operation
  16. TRAMADOL [Suspect]
     Active Substance: TRAMADOL
     Indication: Neck surgery
  17. TRAMADOL [Suspect]
     Active Substance: TRAMADOL
     Indication: Knee operation
  18. CORTISOL [Suspect]
     Active Substance: HYDROCORTISONE
     Indication: Product used for unknown indication
     Dosage: UNK
     Route: 065
  19. DURAGESIC [Suspect]
     Active Substance: FENTANYL
     Indication: Arthralgia
     Dosage: UNK
     Route: 065
  20. DURAGESIC [Suspect]
     Active Substance: FENTANYL
     Indication: Intervertebral disc degeneration
  21. DURAGESIC [Suspect]
     Active Substance: FENTANYL
     Indication: Knee operation
  22. DURAGESIC [Suspect]
     Active Substance: FENTANYL
     Indication: Spinal operation
  23. DURAGESIC [Suspect]
     Active Substance: FENTANYL
     Indication: Neck surgery
  24. HYDROCODONE BITARTRATE AND ACETAMINOPHEN [Suspect]
     Active Substance: ACETAMINOPHEN\HYDROCODONE BITARTRATE
     Indication: Arthralgia
     Dosage: UNK
     Route: 065
  25. HYDROCODONE BITARTRATE AND ACETAMINOPHEN [Suspect]
     Active Substance: ACETAMINOPHEN\HYDROCODONE BITARTRATE
     Indication: Intervertebral disc degeneration
  26. HYDROCODONE BITARTRATE AND ACETAMINOPHEN [Suspect]
     Active Substance: ACETAMINOPHEN\HYDROCODONE BITARTRATE
     Indication: Knee operation
  27. HYDROCODONE BITARTRATE AND ACETAMINOPHEN [Suspect]
     Active Substance: ACETAMINOPHEN\HYDROCODONE BITARTRATE
     Indication: Spinal operation
  28. HYDROCODONE BITARTRATE AND ACETAMINOPHEN [Suspect]
     Active Substance: ACETAMINOPHEN\HYDROCODONE BITARTRATE
     Indication: Neck surgery
  29. HYDROCODONE BITARTRATE [Suspect]
     Active Substance: HYDROCODONE BITARTRATE
     Indication: Product used for unknown indication
     Dosage: UNK
     Route: 065
  30. LORTAB [Suspect]
     Active Substance: ACETAMINOPHEN\HYDROCODONE BITARTRATE
     Indication: Arthralgia
     Dosage: UNK
     Route: 065
  31. LORTAB [Suspect]
     Active Substance: ACETAMINOPHEN\HYDROCODONE BITARTRATE
     Indication: Intervertebral disc degeneration
  32. LORTAB [Suspect]
     Active Substance: ACETAMINOPHEN\HYDROCODONE BITARTRATE
     Indication: Neck surgery
  33. LORTAB [Suspect]
     Active Substance: ACETAMINOPHEN\HYDROCODONE BITARTRATE
     Indication: Knee operation
  34. LORTAB [Suspect]
     Active Substance: ACETAMINOPHEN\HYDROCODONE BITARTRATE
     Indication: Spinal operation
  35. MS CONTIN [Suspect]
     Active Substance: MORPHINE SULFATE
     Indication: Intervertebral disc degeneration
     Dosage: UNK
     Route: 065
  36. MS CONTIN [Suspect]
     Active Substance: MORPHINE SULFATE
     Indication: Arthralgia
  37. MS CONTIN [Suspect]
     Active Substance: MORPHINE SULFATE
     Indication: Neck surgery
  38. MS CONTIN [Suspect]
     Active Substance: MORPHINE SULFATE
     Indication: Spinal operation
  39. MS CONTIN [Suspect]
     Active Substance: MORPHINE SULFATE
     Indication: Knee operation
  40. OXYCONTIN [Suspect]
     Active Substance: OXYCODONE HYDROCHLORIDE
     Indication: Intervertebral disc degeneration
     Dosage: UNK
     Route: 065
  41. OXYCONTIN [Suspect]
     Active Substance: OXYCODONE HYDROCHLORIDE
     Indication: Arthralgia
     Dosage: 360 MILLIGRAM, ONCE A DAY
     Route: 065
  42. OXYCONTIN [Suspect]
     Active Substance: OXYCODONE HYDROCHLORIDE
     Indication: Neck surgery
  43. OXYCONTIN [Suspect]
     Active Substance: OXYCODONE HYDROCHLORIDE
     Indication: Knee operation
  44. OXYCONTIN [Suspect]
     Active Substance: OXYCODONE HYDROCHLORIDE
     Indication: Spinal operation
  45. ACETAMINOPHEN\OXYCODONE HYDROCHLORIDE [Suspect]
     Active Substance: ACETAMINOPHEN\OXYCODONE HYDROCHLORIDE
     Indication: Intervertebral disc degeneration
     Dosage: UNK
     Route: 065
  46. ACETAMINOPHEN\OXYCODONE HYDROCHLORIDE [Suspect]
     Active Substance: ACETAMINOPHEN\OXYCODONE HYDROCHLORIDE
     Indication: Arthralgia
  47. ACETAMINOPHEN\OXYCODONE HYDROCHLORIDE [Suspect]
     Active Substance: ACETAMINOPHEN\OXYCODONE HYDROCHLORIDE
     Indication: Neck surgery
  48. ACETAMINOPHEN\OXYCODONE HYDROCHLORIDE [Suspect]
     Active Substance: ACETAMINOPHEN\OXYCODONE HYDROCHLORIDE
     Indication: Spinal operation
  49. ACETAMINOPHEN\OXYCODONE HYDROCHLORIDE [Suspect]
     Active Substance: ACETAMINOPHEN\OXYCODONE HYDROCHLORIDE
     Indication: Knee operation
  50. PERCOCET [Suspect]
     Active Substance: ACETAMINOPHEN\OXYCODONE HYDROCHLORIDE
     Indication: Arthralgia
     Dosage: UNK
     Route: 065
  51. PERCOCET [Suspect]
     Active Substance: ACETAMINOPHEN\OXYCODONE HYDROCHLORIDE
     Indication: Intervertebral disc degeneration
  52. PERCOCET [Suspect]
     Active Substance: ACETAMINOPHEN\OXYCODONE HYDROCHLORIDE
     Indication: Spinal operation
  53. PERCOCET [Suspect]
     Active Substance: ACETAMINOPHEN\OXYCODONE HYDROCHLORIDE
     Indication: Knee operation
  54. PERCOCET [Suspect]
     Active Substance: ACETAMINOPHEN\OXYCODONE HYDROCHLORIDE
     Indication: Neck surgery
  55. TYLENOL [Suspect]
     Active Substance: ACETAMINOPHEN
     Indication: Arthralgia
     Dosage: UNK
     Route: 065
  56. TYLENOL [Suspect]
     Active Substance: ACETAMINOPHEN
     Indication: Intervertebral disc degeneration
  57. TYLENOL [Suspect]
     Active Substance: ACETAMINOPHEN
     Indication: Neck surgery
  58. TYLENOL [Suspect]
     Active Substance: ACETAMINOPHEN
     Indication: Spinal operation
  59. TYLENOL [Suspect]
     Active Substance: ACETAMINOPHEN
     Indication: Knee operation

REACTIONS (13)
  - Joint destruction [Unknown]
  - Contusion [Unknown]
  - Concussion [Unknown]
  - Blindness [Unknown]
  - Glaucoma [Unknown]
  - Dependence [Unknown]
  - Liver injury [Unknown]
  - Quality of life decreased [Unknown]
  - Road traffic accident [Unknown]
  - Prescribed overdose [Unknown]
  - Overdose [Unknown]
  - Drug dependence [Unknown]
  - Impaired driving ability [Unknown]
